FAERS Safety Report 10422086 (Version 1)
Quarter: 2014Q3

REPORT INFORMATION
  Report Type: Spontaneous
  Country: US (occurrence: US)
  Receive Date: 20140901
  Receipt Date: 20140901
  Transmission Date: 20150326
  Serious: No
  Sender: FDA-Public Use
  Company Number: US-SA-2014SA002339

PATIENT
  Sex: Female

DRUGS (2)
  1. AVAPRO [Suspect]
     Active Substance: IRBESARTAN
     Dosage: TAKEN FROM: SINCE 7 OR 8 YEARS?DOSE: USES IRBESARTAN 300 MG TABLET BUT SHE SPLITS IT.
     Route: 065
  2. SYNTHROID [Concomitant]
     Active Substance: LEVOTHYROXINE SODIUM

REACTIONS (3)
  - Alopecia [Unknown]
  - Wrong technique in drug usage process [Unknown]
  - Malaise [Unknown]
